FAERS Safety Report 25259794 (Version 3)
Quarter: 2025Q2

REPORT INFORMATION
  Report Type: Spontaneous
  Country: FR (occurrence: FR)
  Receive Date: 20250501
  Receipt Date: 20250527
  Transmission Date: 20250717
  Serious: Yes (Death, Other)
  Sender: ELI LILLY AND COMPANY
  Company Number: FR-JNJFOC-20250222253

PATIENT
  Sex: Female
  Weight: 77.4 kg

DRUGS (11)
  1. PEMETREXED [Suspect]
     Active Substance: PEMETREXED
     Indication: Non-small cell lung cancer metastatic
     Route: 065
     Dates: end: 20241231
  2. PEMETREXED [Suspect]
     Active Substance: PEMETREXED
     Route: 065
     Dates: start: 20250117
  3. AMIVANTAMAB [Suspect]
     Active Substance: AMIVANTAMAB
     Indication: Non-small cell lung cancer metastatic
     Route: 065
     Dates: end: 20241112
  4. AMIVANTAMAB [Suspect]
     Active Substance: AMIVANTAMAB
     Route: 065
  5. AMIVANTAMAB [Suspect]
     Active Substance: AMIVANTAMAB
     Route: 065
     Dates: end: 20241231
  6. AMIVANTAMAB [Suspect]
     Active Substance: AMIVANTAMAB
     Route: 065
     Dates: end: 20250117
  7. AMIVANTAMAB [Suspect]
     Active Substance: AMIVANTAMAB
     Route: 065
     Dates: end: 20250207
  8. AMIVANTAMAB [Suspect]
     Active Substance: AMIVANTAMAB
     Route: 065
     Dates: end: 20250330
  9. OSIMERTINIB [Suspect]
     Active Substance: OSIMERTINIB
     Indication: Non-small cell lung cancer metastatic
     Route: 065
  10. CARBOPLATIN [Suspect]
     Active Substance: CARBOPLATIN
     Indication: Non-small cell lung cancer metastatic
     Route: 065
     Dates: end: 20241231
  11. CARBOPLATIN [Suspect]
     Active Substance: CARBOPLATIN
     Route: 065
     Dates: start: 20250117

REACTIONS (2)
  - Malignant neoplasm progression [Fatal]
  - Pancytopenia [Unknown]

NARRATIVE: CASE EVENT DATE: 20250330
